FAERS Safety Report 4377492-X (Version None)
Quarter: 2004Q2

REPORT INFORMATION
  Report Type: 
  Country: None (occurrence: None)
  Receive Date: 20040602
  Receipt Date: 20031001
  Transmission Date: 20050107
  Serious: Yes (Death)
  Sender: FDA-Public Use
  Company Number: NSADSS2001034264

PATIENT
  Age: 52 Year
  Sex: Male
  Weight: 95.2554 kg

DRUGS (4)
  1. PROPULSID [Suspect]
     Indication: IMPAIRED GASTRIC EMPTYING
     Dosage: 10 MG, ORAL
     Route: 048
     Dates: start: 19940901, end: 19950502
  2. METRONIDAZOLE [Concomitant]
  3. FLUOXETINE [Concomitant]
  4. FUROSEMIDE [Concomitant]

REACTIONS (8)
  - ASTHENIA [None]
  - CONDITION AGGRAVATED [None]
  - DEPRESSION [None]
  - DYSPNOEA [None]
  - FATIGUE [None]
  - FLUID RETENTION [None]
  - MEDICATION ERROR [None]
  - VOMITING [None]
